FAERS Safety Report 16273111 (Version 1)
Quarter: 2019Q2

REPORT INFORMATION
  Report Type: Spontaneous
  Country: US (occurrence: US)
  Receive Date: 20190503
  Receipt Date: 20190503
  Transmission Date: 20190711
  Serious: No
  Sender: FDA-Public Use
  Company Number: US-RADIUS HEALTH INC.-2019US000845

PATIENT
  Age: 61 Year
  Sex: Female

DRUGS (1)
  1. TYMLOS [Suspect]
     Active Substance: ABALOPARATIDE
     Indication: OSTEOPOROSIS POSTMENOPAUSAL
     Dosage: 80 MCG, QD
     Route: 058
     Dates: start: 20190312

REACTIONS (10)
  - Dyspnoea [Unknown]
  - Fear [Unknown]
  - Nervousness [Unknown]
  - Product dose omission [Unknown]
  - Injection site haemorrhage [Unknown]
  - Heart rate increased [Unknown]
  - Palpitations [Unknown]
  - Incorrect dose administered by product [Unknown]
  - Chest discomfort [Unknown]
  - Dizziness [Unknown]

NARRATIVE: CASE EVENT DATE: 20190312
